FAERS Safety Report 9351201 (Version 1)
Quarter: 2013Q2

REPORT INFORMATION
  Report Type: Spontaneous
  Country: BR (occurrence: BR)
  Receive Date: 20130617
  Receipt Date: 20130617
  Transmission Date: 20140414
  Serious: Yes (Hospitalization)
  Sender: FDA-Public Use
  Company Number: BR-PFIZER INC-2013176433

PATIENT
  Age: 82 Year
  Sex: Male

DRUGS (5)
  1. EFEXOR XR [Suspect]
     Indication: DEPRESSION
     Dosage: 150 MG PER DAY
     Route: 048
     Dates: start: 201112
  2. ATENOLOL [Concomitant]
     Indication: BLOOD PRESSURE
     Dosage: UNK
  3. CITALOR [Concomitant]
     Indication: BLOOD CHOLESTEROL
     Dosage: 1 TABLET (UNSPECIFIED DOSE) DAILY
     Dates: start: 1999
  4. OLANZAPINE [Concomitant]
     Dosage: UNK
     Dates: start: 2012
  5. RETEMIC [Concomitant]
     Indication: URINARY INCONTINENCE
     Dosage: UNK
     Dates: start: 20111211

REACTIONS (2)
  - Encephalitis [Unknown]
  - Cardiac valve disease [Unknown]
